FAERS Safety Report 6327705-X (Version None)
Quarter: 2009Q3

REPORT INFORMATION
  Report Type: 
  Country: None (occurrence: None)
  Receive Date: 20090818
  Receipt Date: 20090806
  Transmission Date: 20100115
  Serious: Yes (Other)
  Sender: FDA-Public Use
  Company Number: AEUSA200900234

PATIENT
  Age: 49 Year
  Sex: Male

DRUGS (3)
  1. GAMUNEX (10 PCT) IMMUNE GLOBULIN INTRAVENOUS (HUMAN) [Suspect]
     Indication: POLYMYOSITIS
     Dosage: 42 GM; QOW; IV
     Route: 042
     Dates: start: 20090709
  2. IMMUNE GLOBULIN (HUMAN) [Suspect]
  3. GAMMAGARD S/D [Concomitant]

REACTIONS (1)
  - BLOOD CREATINE PHOSPHOKINASE INCREASED [None]
